FAERS Safety Report 8243123-1 (Version None)
Quarter: 2012Q1

REPORT INFORMATION
  Report Type: 
  Country: None (occurrence: None)
  Receive Date: 20120314
  Receipt Date: 20100809
  Transmission Date: 20120608
  Serious: Yes (Other)
  Sender: FDA-Public Use
  Company Number: PHHY2010US47940

PATIENT
  Age: 23 Year
  Sex: Male
  Weight: 97.5 kg

DRUGS (2)
  1. CLOZAPINE [Concomitant]
  2. FANAPT [Suspect]
     Indication: PSYCHOTIC DISORDER
     Dosage: 8 ORAL
     Route: 048
     Dates: start: 20100628, end: 20100716

REACTIONS (1)
  - RETROGRADE EJACULATION [None]
